FAERS Safety Report 4649876-3 (Version None)
Quarter: 2005Q2

REPORT INFORMATION
  Report Type: 
  Country: None (occurrence: None)
  Receive Date: 20050502
  Receipt Date: 20050216
  Transmission Date: 20051028
  Serious: Yes (Hospitalization)
  Sender: FDA-Public Use
  Company Number: DE-MERCK-0502DEU00119

PATIENT
  Age: 55 Year
  Sex: Female

DRUGS (6)
  1. VIOXX [Suspect]
     Indication: PAIN
     Route: 048
     Dates: start: 20040201, end: 20040301
  2. VIOXX [Suspect]
     Route: 048
     Dates: start: 20040301, end: 20040801
  3. ATORVASTATIN CALCIUM [Concomitant]
     Route: 048
     Dates: start: 20040228
  4. ASPIRIN [Concomitant]
     Route: 048
     Dates: start: 20040228
  5. BISOPROLOL FUMARATE [Concomitant]
     Route: 048
     Dates: start: 20040228
  6. PANTOPRAZOLE SODIUM [Concomitant]
     Route: 048
     Dates: start: 20040228

REACTIONS (4)
  - ANGINA PECTORIS [None]
  - HEADACHE [None]
  - VASCULAR GRAFT COMPLICATION [None]
  - VENOUS STENOSIS [None]
